FAERS Safety Report 4462688-9 (Version None)
Quarter: 2004Q3

REPORT INFORMATION
  Report Type: 
  Country: None (occurrence: None)
  Receive Date: 20040927
  Receipt Date: 20040916
  Transmission Date: 20050211
  Serious: Yes (Death)
  Sender: FDA-Public Use
  Company Number: MK200409-0133-1

PATIENT
  Age: 24 Year
  Sex: Male

DRUGS (3)
  1. METHADOSE [Suspect]
     Dosage: 4 TABLET TID-QID
     Dates: start: 20040615, end: 20040618
  2. XANAX [Concomitant]
  3. DEPAKOTE [Concomitant]

REACTIONS (3)
  - COMA [None]
  - FOAMING AT MOUTH [None]
  - OVERDOSE [None]
